FAERS Safety Report 17287673 (Version 4)
Quarter: 2020Q3

REPORT INFORMATION
  Report Type: Spontaneous
  Country: BR (occurrence: BR)
  Receive Date: 20200120
  Receipt Date: 20200801
  Transmission Date: 20201102
  Serious: Yes (Death, Hospitalization)
  Sender: FDA-Public Use
  Company Number: BR-B.I. PHARMACEUTICALS,INC./RIDGEFIELD-2020-BI-002289

PATIENT
  Age: 64 Year
  Sex: Female
  Weight: 50 kg

DRUGS (13)
  1. SPIRIVA RESPIMAT [Suspect]
     Active Substance: TIOTROPIUM BROMIDE
     Indication: EMPHYSEMA
     Route: 055
     Dates: start: 201911, end: 20200106
  2. OMEPRAZOL [OMEPRAZOLE] [Concomitant]
     Active Substance: OMEPRAZOLE
     Indication: PROPHYLAXIS
  3. ALENIA [BUDESONIDE;FORMOTEROL FUMARATE] [Concomitant]
     Active Substance: BUDESONIDE\FORMOTEROL FUMARATE
     Indication: EMPHYSEMA
     Route: 055
  4. CARBAMAZEPINA [Concomitant]
     Active Substance: CARBAMAZEPINE
     Indication: CARDIAC DISORDER
     Route: 048
  5. PREDNISONA [Concomitant]
     Active Substance: PREDNISONE
     Indication: PRODUCT USED FOR UNKNOWN INDICATION
     Route: 048
  6. SPIRIVA RESPIMAT [Suspect]
     Active Substance: TIOTROPIUM BROMIDE
     Route: 055
     Dates: start: 20200109, end: 202001
  7. LEVOTIROXINA [LEVOTHYROXINE] [Concomitant]
     Indication: THYROID DISORDER
     Route: 048
  8. METOPROLOL. [Concomitant]
     Active Substance: METOPROLOL
     Indication: BLOOD PRESSURE MEASUREMENT
     Route: 048
  9. HIDRALAZINA [HYDRALAZINE] [Concomitant]
     Indication: PRODUCT USED FOR UNKNOWN INDICATION
     Route: 048
  10. DINITRATO DE ISOSSORBIDA [Concomitant]
     Indication: POST PROCEDURAL COMPLICATION
     Route: 048
  11. SINVASTATINA [Concomitant]
     Active Substance: SIMVASTATIN
     Indication: PRODUCT USED FOR UNKNOWN INDICATION
     Route: 048
  12. OMEPRAZOL [OMEPRAZOLE] [Concomitant]
     Active Substance: OMEPRAZOLE
     Indication: GASTRIC DISORDER
     Route: 048
  13. FUROSEMIDA [FUROSEMIDE] [Concomitant]
     Active Substance: FUROSEMIDE
     Indication: DIURETIC THERAPY
     Route: 048

REACTIONS (6)
  - Dyspnoea [Recovered/Resolved]
  - Gastrointestinal infection [Not Recovered/Not Resolved]
  - Nosocomial infection [Fatal]
  - Cardiac disorder [Recovered/Resolved]
  - Intestinal obstruction [Fatal]
  - Limb injury [Unknown]

NARRATIVE: CASE EVENT DATE: 20191114
